FAERS Safety Report 14625482 (Version 3)
Quarter: 2019Q1

REPORT INFORMATION
  Report Type: Spontaneous
  Country: US (occurrence: US)
  Receive Date: 20180312
  Receipt Date: 20190311
  Transmission Date: 20190417
  Serious: No
  Sender: FDA-Public Use
  Company Number: US-ALLERGAN-1758128US

PATIENT
  Sex: Female

DRUGS (2)
  1. OXYTROL [Suspect]
     Active Substance: OXYBUTYNIN
     Indication: HYPERTONIC BLADDER
     Dosage: UNK
     Route: 061
     Dates: start: 2016
  2. OXYTROL [Suspect]
     Active Substance: OXYBUTYNIN
     Dosage: UNK
     Route: 061
     Dates: start: 2016

REACTIONS (4)
  - Pruritus [Not Recovered/Not Resolved]
  - Product packaging issue [Unknown]
  - Erythema [Not Recovered/Not Resolved]
  - Drug ineffective [Unknown]
